FAERS Safety Report 5126575-5 (Version None)
Quarter: 2006Q4

REPORT INFORMATION
  Report Type: 
  Country: None (occurrence: None)
  Receive Date: 20061012
  Receipt Date: 20061012
  Transmission Date: 20070319
  Serious: Yes (Life-Threatening, Hospitalization)
  Sender: FDA-Public Use
  Company Number: None

PATIENT
  Sex: Female

DRUGS (1)
  1. ABCIXIMAB   10 MG [Suspect]
     Indication: CATHETERISATION CARDIAC
     Dosage: 10 MG   ONCE    IV BOLUS
     Route: 040
     Dates: start: 20060815, end: 20060815

REACTIONS (2)
  - HAEMORRHAGE [None]
  - THROMBOCYTOPENIA [None]
